FAERS Safety Report 23484394 (Version 1)
Quarter: 2024Q1

REPORT INFORMATION
  Report Type: Spontaneous
  Country: US (occurrence: US)
  Receive Date: 20240206
  Receipt Date: 20240206
  Transmission Date: 20240409
  Serious: Yes (Other)
  Sender: FDA-Public Use
  Company Number: US-BRISTOL-MYERS SQUIBB COMPANY-2024-016277

PATIENT
  Age: 63 Year
  Sex: Female

DRUGS (1)
  1. LENALIDOMIDE [Suspect]
     Active Substance: LENALIDOMIDE
     Indication: Follicular lymphoma
     Dosage: TAKE 1 CAPSULE BY MOUTH DAILY FOR 21 DAYS FOLLOWED BY 7 DAYS OFF
     Route: 048

REACTIONS (13)
  - Erythema [Recovered/Resolved]
  - Dry skin [Unknown]
  - Blood potassium decreased [Unknown]
  - Thrombosis [Unknown]
  - Aortic stenosis [Unknown]
  - Hypotension [Unknown]
  - Anal incontinence [Unknown]
  - Urinary tract infection [Unknown]
  - Headache [Recovered/Resolved]
  - Abdominal pain [Unknown]
  - Dyspnoea [Unknown]
  - Decreased appetite [Unknown]
  - Pulmonary thrombosis [Unknown]
